FAERS Safety Report 25868806 (Version 2)
Quarter: 2025Q4

REPORT INFORMATION
  Report Type: Spontaneous
  Country: US (occurrence: US)
  Receive Date: 20251001
  Receipt Date: 20251007
  Transmission Date: 20260118
  Serious: Yes (Other)
  Sender: BRISTOL-MYERS SQUIBB COMPANY
  Company Number: US-CELGENE-163-21660-12121225

PATIENT

DRUGS (2)
  1. ABRAXANE [Suspect]
     Active Substance: PACLITAXEL
     Indication: Pancreatic carcinoma metastatic
     Dosage: 75-125 MG/M2
  2. ABRAXANE [Suspect]
     Active Substance: PACLITAXEL
     Dosage: 75-125 MG/M^2 (REDUCED DOSE)

REACTIONS (1)
  - Fatigue [Unknown]
